FAERS Safety Report 6381773-8 (Version None)
Quarter: 2009Q3

REPORT INFORMATION
  Report Type: 
  Country: None (occurrence: None)
  Receive Date: 20090930
  Receipt Date: 20090923
  Transmission Date: 20100115
  Serious: Yes (Other)
  Sender: FDA-Public Use
  Company Number: US-RANBAXY-2009US-28157

PATIENT

DRUGS (1)
  1. AMOXICILLIN [Suspect]
     Indication: CELLULITIS
     Dosage: 500 MG, QD
     Route: 048
     Dates: start: 20080301, end: 20080301

REACTIONS (3)
  - ABDOMINAL PAIN UPPER [None]
  - ANAPHYLACTIC SHOCK [None]
  - SWOLLEN TONGUE [None]
